FAERS Safety Report 6679355-3 (Version None)
Quarter: 2010Q2

REPORT INFORMATION
  Report Type: 
  Country: None (occurrence: None)
  Receive Date: 20100413
  Receipt Date: 20100406
  Transmission Date: 20101027
  Serious: Yes (Other)
  Sender: FDA-Public Use
  Company Number: GB-AMGEN-QUU394082

PATIENT
  Sex: Female
  Weight: 62.8 kg

DRUGS (7)
  1. NEULASTA [Suspect]
     Indication: CHEMOTHERAPY
     Route: 058
     Dates: start: 20100108, end: 20100219
  2. FLUOROURACIL [Concomitant]
  3. EPIRUBICIN [Concomitant]
  4. CYCLOPHOSPHAMIDE [Concomitant]
  5. APREPITANT [Concomitant]
     Route: 048
     Dates: start: 20100218, end: 20100220
  6. DEXAMETHASONE [Concomitant]
     Route: 048
     Dates: start: 20100219, end: 20100221
  7. DOMPERIDONE [Concomitant]
     Route: 048
     Dates: start: 20100219, end: 20100223

REACTIONS (6)
  - ANAPHYLACTIC REACTION [None]
  - DYSPNOEA [None]
  - ERYTHEMA [None]
  - PANIC ATTACK [None]
  - THROAT TIGHTNESS [None]
  - UPPER AIRWAY OBSTRUCTION [None]
